FAERS Safety Report 5072645-X (Version None)
Quarter: 2006Q3

REPORT INFORMATION
  Report Type: 
  Country: None (occurrence: None)
  Receive Date: 20060807
  Receipt Date: 20060731
  Transmission Date: 20061208
  Serious: Yes (Death, Life-Threatening, Hospitalization)
  Sender: FDA-Public Use
  Company Number: FR-GLAXOSMITHKLINE-B0432620A

PATIENT
  Age: 79 Year
  Sex: Female
  Weight: 59 kg

DRUGS (9)
  1. ARIXTRA [Suspect]
     Indication: PHLEBITIS
     Route: 058
     Dates: start: 20060623, end: 20060626
  2. PREVISCAN [Suspect]
     Indication: PHLEBITIS
     Dosage: 20MG PER DAY
     Route: 048
     Dates: start: 20060623, end: 20060626
  3. PYOSTACINE [Concomitant]
     Indication: ERYSIPELAS
     Route: 048
     Dates: start: 20060618, end: 20060626
  4. LEXOMIL [Concomitant]
     Dosage: 6MG PER DAY
     Route: 048
     Dates: end: 20060626
  5. KERLONE [Concomitant]
     Indication: ESSENTIAL HYPERTENSION
     Dosage: 20MG PER DAY
     Route: 048
     Dates: end: 20060626
  6. LOXEN [Concomitant]
     Indication: ESSENTIAL HYPERTENSION
     Dosage: 20MG PER DAY
     Route: 048
     Dates: end: 20060626
  7. DAFLON [Concomitant]
  8. PHYSIOTENS [Concomitant]
  9. CLAMOXYL [Concomitant]
     Indication: ERYSIPELAS

REACTIONS (10)
  - BRADYCARDIA [None]
  - CEREBRAL HAEMATOMA [None]
  - CEREBRAL HAEMORRHAGE [None]
  - COMA [None]
  - DEPRESSED LEVEL OF CONSCIOUSNESS [None]
  - HAEMODYNAMIC INSTABILITY [None]
  - RESPIRATORY ARREST [None]
  - SUICIDE ATTEMPT [None]
  - VENTRICULAR EXTRASYSTOLES [None]
  - VENTRICULAR TACHYCARDIA [None]
